FAERS Safety Report 20967711 (Version 2)
Quarter: 2022Q3

REPORT INFORMATION
  Report Type: Spontaneous
  Country: US (occurrence: US)
  Receive Date: 20220616
  Receipt Date: 20220929
  Transmission Date: 20221026
  Serious: Yes (Other)
  Sender: FDA-Public Use
  Company Number: US-BRISTOL-MYERS SQUIBB COMPANY-2022-052634

PATIENT
  Age: 75 Year
  Sex: Male
  Weight: 54.43 kg

DRUGS (1)
  1. REVLIMID [Suspect]
     Active Substance: LENALIDOMIDE
     Indication: Plasma cell myeloma
     Dosage: 21 DAYS ON 7 DAYS OFF?REVLID LOT NUMBER A3763A AND EXPIRY 30 SEP 2024
     Route: 048
     Dates: start: 20210108

REACTIONS (1)
  - Blindness [Not Recovered/Not Resolved]
